FAERS Safety Report 5529705-6 (Version None)
Quarter: 2007Q4

REPORT INFORMATION
  Report Type: 
  Country: None (occurrence: None)
  Receive Date: 20071129
  Receipt Date: 20071121
  Transmission Date: 20080405
  Serious: Yes (Other)
  Sender: FDA-Public Use
  Company Number: JP-PFIZER INC-2007098348

PATIENT
  Age: 74 Year
  Sex: Female

DRUGS (7)
  1. CABERGOLINE [Suspect]
     Indication: PARKINSON'S DISEASE
     Dosage: DAILY DOSE:1MG
     Route: 048
  2. LIVALO [Concomitant]
     Route: 048
  3. FAMOTIDINE [Concomitant]
  4. DOMPERIDONE [Concomitant]
     Route: 048
  5. PERGOLIDE MESYLATE [Concomitant]
  6. SOLANAX [Concomitant]
  7. ALL OTHER THERAPEUTIC PRODUCTS [Concomitant]

REACTIONS (1)
  - CARDIAC DISORDER [None]
